FAERS Safety Report 21038402 (Version 1)
Quarter: 2022Q3

REPORT INFORMATION
  Report Type: Spontaneous
  Country: US (occurrence: US)
  Receive Date: 20220704
  Receipt Date: 20220704
  Transmission Date: 20221026
  Serious: No
  Sender: FDA-Public Use
  Company Number: US-BAUSCH-BL-2022-016344

PATIENT
  Sex: Female

DRUGS (4)
  1. BEPOTASTINE BESILATE [Suspect]
     Active Substance: BEPOTASTINE BESILATE
     Indication: Product used for unknown indication
     Route: 047
  2. BEPOTASTINE BESILATE [Suspect]
     Active Substance: BEPOTASTINE BESILATE
  3. BEPREVE [Suspect]
     Active Substance: BEPOTASTINE BESILATE
     Indication: Product used for unknown indication
     Route: 047
  4. BEPREVE [Suspect]
     Active Substance: BEPOTASTINE BESILATE

REACTIONS (3)
  - Therapeutic product effect incomplete [Unknown]
  - Product availability issue [Unknown]
  - Product substitution issue [Unknown]
